FAERS Safety Report 6163809-2 (Version None)
Quarter: 2009Q2

REPORT INFORMATION
  Report Type: 
  Country: None (occurrence: None)
  Receive Date: 20090422
  Receipt Date: 20011211
  Transmission Date: 20091009
  Serious: No
  Sender: FDA-Public Use
  Company Number: US-SOLVAY-00201005112

PATIENT
  Age: 19937 Day
  Sex: Female
  Weight: 58.967 kg

DRUGS (5)
  1. PROZAC [Concomitant]
     Indication: DEPRESSION
     Dosage: DAILY DOSE: 40 MG.
     Route: 048
     Dates: start: 19880101
  2. ANDROGEL [Suspect]
     Indication: ACCIDENTAL EXPOSURE
     Dosage: DAILY DOSE: UNK.
     Route: 062
     Dates: start: 20011128
  3. GEMFIBROZIL [Concomitant]
     Indication: BLOOD CHOLESTEROL INCREASED
     Route: 048
  4. ESTROPIPATE [Concomitant]
     Indication: BLOOD OESTROGEN
     Dosage: DAILY DOSE: 0.75 MG.
     Route: 048
     Dates: start: 19950101
  5. MEDROXYPROGESTERONE [Concomitant]
     Indication: BLOOD OESTROGEN
     Dosage: DAILY DOSE: 2.5 MG.
     Route: 048
     Dates: start: 19950101

REACTIONS (1)
  - MENORRHAGIA [None]
